FAERS Safety Report 5490358-7 (Version None)
Quarter: 2007Q4

REPORT INFORMATION
  Report Type: 
  Country: None (occurrence: None)
  Receive Date: 20071015
  Receipt Date: 20060914
  Transmission Date: 20080405
  Serious: Yes (Other)
  Sender: FDA-Public Use
  Company Number: PHEH2006US11765

PATIENT
  Age: 60 Year
  Sex: Female

DRUGS (1)
  1. MIACALCIN [Suspect]
     Indication: OSTEOPOROSIS
     Dosage: INTRANASAL
     Route: 050
     Dates: start: 20040708

REACTIONS (12)
  - ARTHRALGIA [None]
  - ARTHRITIS [None]
  - BACK PAIN [None]
  - CYSTITIS [None]
  - DEAFNESS UNILATERAL [None]
  - EAR PAIN [None]
  - HYPERHIDROSIS [None]
  - INSOMNIA [None]
  - MIGRAINE [None]
  - THIRST [None]
  - URINE ABNORMALITY [None]
  - VISION BLURRED [None]
